FAERS Safety Report 23396461 (Version 1)
Quarter: 2024Q1

REPORT INFORMATION
  Report Type: Report from Study
  Country: PH (occurrence: None)
  Receive Date: 20240112
  Receipt Date: 20240112
  Transmission Date: 20240410
  Serious: Yes (Death, Other)
  Sender: FDA-Public Use
  Company Number: 2024A007652

PATIENT
  Age: 22154 Day
  Sex: Female

DRUGS (1)
  1. FASLODEX [Suspect]
     Active Substance: FULVESTRANT
     Indication: Breast cancer
     Dosage: 250.0MG UNKNOWN
     Route: 030
     Dates: start: 202302, end: 202307

REACTIONS (2)
  - Death [Fatal]
  - Metastases to liver [Unknown]

NARRATIVE: CASE EVENT DATE: 20230814
